APPROVED DRUG PRODUCT: AMINO ACIDS
Active Ingredient: AMINO ACIDS
Strength: 15%(150GM/1000ML)
Dosage Form/Route: INJECTABLE;INJECTION
Application: A091112 | Product #001
Applicant: B BRAUN MEDICAL INC
Approved: Apr 13, 2012 | RLD: No | RS: No | Type: RX